FAERS Safety Report 4291625-5 (Version None)
Quarter: 2004Q1

REPORT INFORMATION
  Report Type: 
  Country: None (occurrence: None)
  Receive Date: 20040126
  Receipt Date: 20031114
  Transmission Date: 20041129
  Serious: No
  Sender: FDA-Public Use
  Company Number: USA031152605

PATIENT
  Age: 74 Year
  Sex: Female

DRUGS (7)
  1. FORTEO [Suspect]
     Indication: OSTEOPOROSIS
     Dates: start: 20031027
  2. DIOVAN HCT [Concomitant]
  3. CELEBREX [Concomitant]
  4. TRANDATE [Concomitant]
  5. NORVASC [Concomitant]
  6. MIACALCIN [Concomitant]
  7. MULTIVITAMIN [Concomitant]

REACTIONS (2)
  - BACK PAIN [None]
  - NAUSEA [None]
